FAERS Safety Report 8498161-0 (Version None)
Quarter: 2012Q3

REPORT INFORMATION
  Report Type: 
  Country: None (occurrence: None)
  Receive Date: 20120709
  Receipt Date: 20120620
  Transmission Date: 20120928
  Serious: No
  Sender: FDA-Public Use
  Company Number: US-AMGEN-USASP2011065174

PATIENT
  Age: 60 Year
  Sex: Male

DRUGS (2)
  1. ENBREL [Suspect]
     Dosage: UNK UNK, Q2WK
     Route: 058
     Dates: start: 20100601, end: 20100901
  2. ENBREL [Suspect]
     Indication: PSORIASIS
     Dosage: 50 MG, 2 TIMES/WK
     Dates: start: 20101006, end: 20110101

REACTIONS (3)
  - PSORIASIS [None]
  - FEELING ABNORMAL [None]
  - FATIGUE [None]
